FAERS Safety Report 20690754 (Version 1)
Quarter: 2022Q2

REPORT INFORMATION
  Report Type: Report from Study
  Country: US (occurrence: None)
  Receive Date: 20220408
  Receipt Date: 20220408
  Transmission Date: 20220721
  Serious: Yes (Other)
  Sender: FDA-Public Use
  Company Number: US-Eisai Medical Research-EC-2022-110295

PATIENT
  Age: 63 Year
  Sex: Female

DRUGS (1)
  1. LENVIMA [Suspect]
     Active Substance: LENVATINIB
     Indication: Endometrial cancer
     Route: 048
     Dates: start: 20220309, end: 202203

REACTIONS (14)
  - Diabetes mellitus [Unknown]
  - Dizziness [Unknown]
  - Nausea [Unknown]
  - Pain in extremity [Unknown]
  - Hypoaesthesia [Unknown]
  - Hypertension [Unknown]
  - Tongue disorder [Unknown]
  - Gingival swelling [Unknown]
  - Cough [Unknown]
  - Insomnia [Unknown]
  - Pain [Unknown]
  - Malnutrition [Unknown]
  - Renal disorder [Unknown]
  - Vomiting [Unknown]

NARRATIVE: CASE EVENT DATE: 20220301
